FAERS Safety Report 20152369 (Version 1)
Quarter: 2021Q4

REPORT INFORMATION
  Report Type: Spontaneous
  Country: US (occurrence: None)
  Receive Date: 20211205
  Receipt Date: 20211205
  Transmission Date: 20220304
  Serious: Yes (Other)
  Sender: FDA-Public Use
  Company Number: None

PATIENT
  Age: 44 Year
  Sex: Female
  Weight: 54 kg

DRUGS (1)
  1. ENTYVIO [Suspect]
     Active Substance: VEDOLIZUMAB
     Indication: Colitis ulcerative
     Dosage: OTHER QUANTITY : 1 1;?OTHER FREQUENCY : FIRST DOSE;?
     Route: 042
     Dates: start: 20211203, end: 20211204

REACTIONS (7)
  - Abdominal pain [None]
  - Abdominal tenderness [None]
  - Abdominal distension [None]
  - Migraine [None]
  - Rash [None]
  - Urticaria [None]
  - Pruritus [None]

NARRATIVE: CASE EVENT DATE: 20211203
